FAERS Safety Report 9834493 (Version 4)
Quarter: 2014Q2

REPORT INFORMATION
  Report Type: Report from Study
  Country: US (occurrence: US)
  Receive Date: 20140122
  Receipt Date: 20140512
  Transmission Date: 20141212
  Serious: Yes (Death, Life-Threatening, Hospitalization, Disabling)
  Sender: FDA-Public Use
  Company Number: US-ROCHE-1335078

PATIENT
  Age: 72 Year
  Sex: Male
  Weight: 113.5 kg

DRUGS (21)
  1. RANIBIZUMAB [Suspect]
     Indication: DIABETIC RETINAL OEDEMA
     Route: 050
     Dates: start: 20131217
  2. RANIBIZUMAB [Suspect]
     Route: 050
     Dates: start: 20140116
  3. RANIBIZUMAB [Suspect]
     Route: 050
     Dates: start: 20140218
  4. LISINOPRIL [Concomitant]
     Route: 065
  5. TOPROL XL [Concomitant]
     Route: 065
  6. CELEXA (UNITED STATES) [Concomitant]
     Route: 065
  7. ASPIRIN [Concomitant]
     Route: 065
  8. NOVOLIN [Concomitant]
     Route: 065
  9. NOVOLOG [Concomitant]
     Dosage: DOSE 5-10 UNITS TID.
     Route: 065
  10. AMLODIPINE [Concomitant]
     Route: 065
  11. NITROGLYCERINE [Concomitant]
     Dosage: 0.4 MG/HR PRN
     Route: 062
  12. CALCIUM ACETATE [Concomitant]
     Route: 065
  13. LASIX [Concomitant]
     Route: 065
  14. MELATONIN [Concomitant]
     Route: 065
  15. REMERON [Concomitant]
     Route: 065
  16. ATIVAN [Concomitant]
     Route: 065
  17. CALCITROL [Concomitant]
     Route: 065
  18. OMEPRAZOLE [Concomitant]
     Route: 065
  19. CLONIDINE [Concomitant]
     Route: 065
  20. OMEGA 3 [Concomitant]
     Route: 065
  21. PLAVIX [Concomitant]
     Route: 065

REACTIONS (11)
  - Coronary artery disease [Fatal]
  - Atrioventricular block complete [Fatal]
  - Multi-organ failure [Fatal]
  - Myocardial infarction [Recovered/Resolved]
  - Myocardial infarction [Unknown]
  - Arrhythmia [Unknown]
  - Blood pressure decreased [Unknown]
  - Cardiac failure [Unknown]
  - Cardiac arrest [Unknown]
  - Gangrene [Unknown]
  - Diabetic foot [Unknown]
